FAERS Safety Report 12557479 (Version 36)
Quarter: 2018Q4

REPORT INFORMATION
  Report Type: Spontaneous
  Country: US (occurrence: US)
  Receive Date: 20160714
  Receipt Date: 20181112
  Transmission Date: 20190204
  Serious: Yes (Hospitalization, Other)
  Sender: FDA-Public Use
  Company Number: US-PFIZER INC-2016331976

PATIENT
  Age: 70 Year
  Sex: Female
  Weight: 54 kg

DRUGS (18)
  1. BAYER ASPIRIN [Concomitant]
     Active Substance: ASPIRIN
     Indication: CARDIAC DISORDER
  2. VITAMIN A [Concomitant]
     Active Substance: VITAMIN A
     Indication: METABOLIC DISORDER
  3. XELJANZ [Suspect]
     Active Substance: TOFACITINIB CITRATE
     Dosage: 5 MG, TWICE A DAY
     Route: 048
  4. XELJANZ [Suspect]
     Active Substance: TOFACITINIB CITRATE
     Dosage: 5 MG, 2X/DAY
     Route: 048
     Dates: start: 2014
  5. PREDNISONE. [Concomitant]
     Active Substance: PREDNISONE
     Dosage: 5 MG, UNK
     Dates: end: 201801
  6. BAYER ASPIRIN [Concomitant]
     Active Substance: ASPIRIN
     Indication: PAIN
  7. SUPER 3B [Concomitant]
     Dosage: UNK UNK, DAILY (2 A DAY)
  8. TYLENOL EXTRA STRENGTH [Concomitant]
     Active Substance: ACETAMINOPHEN
     Indication: PAIN
     Dosage: 500 MG, UNK
  9. XELJANZ [Suspect]
     Active Substance: TOFACITINIB CITRATE
     Dosage: 5 MG, UNK
     Route: 048
  10. XELJANZ [Suspect]
     Active Substance: TOFACITINIB CITRATE
     Dosage: 5 MG, 2X/DAY
     Route: 048
     Dates: end: 20181018
  11. VITAMIN A [Concomitant]
     Active Substance: VITAMIN A
     Indication: IMMUNE ENHANCEMENT THERAPY
     Dosage: UNK UNK, DAILY (2 A DAY)
  12. XELJANZ [Suspect]
     Active Substance: TOFACITINIB CITRATE
     Dosage: 5 MG, UNK
     Route: 048
  13. PREDNISONE. [Concomitant]
     Active Substance: PREDNISONE
     Indication: PAIN
     Dosage: 10 MG, UNK
     Dates: start: 201712
  14. BAYER ASPIRIN [Concomitant]
     Active Substance: ASPIRIN
     Indication: BLOOD CHOLESTEROL ABNORMAL
     Dosage: 87 MG, DAILY
  15. XELJANZ [Suspect]
     Active Substance: TOFACITINIB CITRATE
     Indication: RHEUMATOID ARTHRITIS
     Dosage: 5 MG, TWICE A DAY
     Route: 048
  16. XELJANZ [Suspect]
     Active Substance: TOFACITINIB CITRATE
     Dosage: 5 MG, TWICE A DAY
     Route: 048
     Dates: start: 2014
  17. XELJANZ [Suspect]
     Active Substance: TOFACITINIB CITRATE
     Dosage: 5 MG, UNK
     Route: 048
  18. XELJANZ [Suspect]
     Active Substance: TOFACITINIB CITRATE
     Dosage: 5 MG, 2X/DAY (MORNING AND AT NIGHT)
     Route: 048

REACTIONS (47)
  - Drug hypersensitivity [Unknown]
  - Medication error [Unknown]
  - Influenza [Recovering/Resolving]
  - Cough [Not Recovered/Not Resolved]
  - Discomfort [Unknown]
  - Increased upper airway secretion [Unknown]
  - Vision blurred [Not Recovered/Not Resolved]
  - Stomatitis [Recovering/Resolving]
  - Respiratory tract infection [Recovered/Resolved]
  - Drug ineffective [Unknown]
  - Product dose omission [Unknown]
  - Urinary tract infection [Unknown]
  - Pain in extremity [Not Recovered/Not Resolved]
  - Blood cholesterol increased [Recovering/Resolving]
  - Eye discharge [Unknown]
  - Sinus disorder [Not Recovered/Not Resolved]
  - Eye pruritus [Unknown]
  - Gait inability [Unknown]
  - Peripheral swelling [Unknown]
  - Nasal congestion [Not Recovered/Not Resolved]
  - Upper respiratory tract congestion [Unknown]
  - Pain [Not Recovered/Not Resolved]
  - Insomnia [Unknown]
  - Pharyngeal disorder [Unknown]
  - Arthralgia [Not Recovered/Not Resolved]
  - Oral mucosal exfoliation [Recovering/Resolving]
  - Blood pressure increased [Not Recovered/Not Resolved]
  - Stress [Unknown]
  - Oropharyngeal pain [Unknown]
  - Throat irritation [Unknown]
  - Pharyngeal erythema [Unknown]
  - Pharyngeal inflammation [Unknown]
  - Throat irritation [Not Recovered/Not Resolved]
  - Product dispensing error [Unknown]
  - Ocular hyperaemia [Unknown]
  - Sinus congestion [Unknown]
  - Condition aggravated [Unknown]
  - Dysphonia [Not Recovered/Not Resolved]
  - Headache [Unknown]
  - Lung disorder [Unknown]
  - Periorbital oedema [Unknown]
  - Aphonia [Recovering/Resolving]
  - Dermatitis allergic [Unknown]
  - Immune system disorder [Unknown]
  - Spinal pain [Unknown]
  - Sputum increased [Unknown]
  - Malaise [Unknown]

NARRATIVE: CASE EVENT DATE: 2015
